FAERS Safety Report 10384516 (Version 2)
Quarter: 2014Q3

REPORT INFORMATION
  Report Type: Spontaneous
  Country: DK (occurrence: DK)
  Receive Date: 20140814
  Receipt Date: 20140814
  Transmission Date: 20150326
  Serious: Yes (Hospitalization)
  Sender: FDA-Public Use
  Company Number: DK-B.I. PHARMACEUTICALS,INC./RIDGEFIELD-2014-BI-37151DB

PATIENT
  Age: 72 Year
  Sex: Male

DRUGS (5)
  1. ASASANTIN RETARD [Suspect]
     Active Substance: ASPIRIN\DIPYRIDAMOLE
     Indication: THROMBOSIS PROPHYLAXIS
     Dosage: DOSE PER APPLICATION AND DAILY DOSE: STYRKE: 200 + 25 MG - 209
     Route: 048
     Dates: start: 20090415, end: 20140704
  2. CENTYL MED KALIUMKLORID [Concomitant]
     Active Substance: BENDROFLUMETHIAZIDE\POTASSIUM CHLORIDE
     Indication: DIURETIC THERAPY
     Route: 065
  3. ENALAPRILMALEAT [Concomitant]
     Indication: HYPERTENSION
     Route: 065
  4. BACLOFEN. [Concomitant]
     Active Substance: BACLOFEN
     Indication: MUSCLE SPASMS
     Route: 065
  5. PINEX [Concomitant]
     Active Substance: ACETAMINOPHEN
     Indication: PAIN
     Route: 065

REACTIONS (7)
  - Dehydration [Recovered/Resolved]
  - Transfusion [Recovered/Resolved]
  - Gastric ulcer [Recovered/Resolved]
  - Asthenia [Recovered/Resolved]
  - Anaemia [Recovered/Resolved]
  - Dyspepsia [Recovered/Resolved]
  - Vomiting [Recovered/Resolved]

NARRATIVE: CASE EVENT DATE: 201307
